FAERS Safety Report 10905737 (Version 1)
Quarter: 2015Q1

REPORT INFORMATION
  Report Type: Spontaneous
  Country: GB (occurrence: GB)
  Receive Date: 20150311
  Receipt Date: 20150311
  Transmission Date: 20150721
  Serious: Yes (Death, Life-Threatening, Other)
  Sender: FDA-Public Use
  Company Number: GB-JNJFOC-20150300641

PATIENT
  Age: 82 Year
  Sex: Female

DRUGS (2)
  1. RIVAROXABAN [Suspect]
     Active Substance: RIVAROXABAN
     Indication: CEREBROVASCULAR ACCIDENT PROPHYLAXIS
     Route: 048
  2. RIVAROXABAN [Suspect]
     Active Substance: RIVAROXABAN
     Indication: ATRIAL FIBRILLATION
     Route: 048

REACTIONS (9)
  - Haemorrhage [Fatal]
  - Coagulopathy [Unknown]
  - Injection site haemorrhage [Unknown]
  - Duodenal ulcer [Unknown]
  - Hypovolaemic shock [Unknown]
  - Upper gastrointestinal haemorrhage [Unknown]
  - Rectal haemorrhage [Unknown]
  - Haematemesis [Unknown]
  - Thrombocytopenia [Unknown]
